FAERS Safety Report 18264462 (Version 1)
Quarter: 2020Q3

REPORT INFORMATION
  Report Type: Spontaneous
  Country: US (occurrence: US)
  Receive Date: 20200914
  Receipt Date: 20200914
  Transmission Date: 20201103
  Serious: No
  Sender: FDA-Public Use
  Company Number: US-PFIZER INC-2020315595

PATIENT
  Age: 79 Year
  Sex: Male
  Weight: 65.77 kg

DRUGS (5)
  1. CHANTIX [Suspect]
     Active Substance: VARENICLINE TARTRATE
     Indication: SMOKING CESSATION THERAPY
     Dosage: UNK
  2. LEVOTHYROXINE. [Concomitant]
     Active Substance: LEVOTHYROXINE
     Dosage: 50 MG, 1X/DAY
  3. ATORVASTATIN [Concomitant]
     Active Substance: ATORVASTATIN
     Dosage: 40 MG
  4. OMEPRAZOLE. [Concomitant]
     Active Substance: OMEPRAZOLE
     Indication: DYSPEPSIA
     Dosage: 20 MG, 1X/DAY
  5. METOPROLOL. [Concomitant]
     Active Substance: METOPROLOL
     Dosage: 12.5 MG, 1X/DAY(25MG HALF A PILL ONCE A DAY)

REACTIONS (1)
  - Arthropod bite [Unknown]
